FAERS Safety Report 23567018 (Version 1)
Quarter: 2024Q1

REPORT INFORMATION
  Report Type: Spontaneous
  Country: CA (occurrence: CA)
  Receive Date: 20240226
  Receipt Date: 20240226
  Transmission Date: 20240410
  Serious: Yes (Other)
  Sender: FDA-Public Use
  Company Number: CA-PFIZER INC-202400038684

PATIENT
  Age: 70 Year
  Sex: Female

DRUGS (5)
  1. METHOTREXATE SODIUM [Suspect]
     Active Substance: METHOTREXATE SODIUM
     Indication: Uveitis
     Dosage: 20 MG, WEEKLY INJECTION
  2. METHOTREXATE SODIUM [Suspect]
     Active Substance: METHOTREXATE SODIUM
     Dosage: 1 DF, WEEKLY(DOSAGE INFO:  UNKNOWN)
     Route: 065
  3. ABRILADA [Concomitant]
     Active Substance: ADALIMUMAB-AFZB
     Indication: Uveitis
     Dosage: 1 DF,80MG AT WEEK0 AND 40MG EVERY OTHER WEEK BEGINNING AT WEEK 1 (ATTEMPT UNSUCCESSFUL ON 28OCT2023)
     Route: 058
  4. ABRILADA [Concomitant]
     Active Substance: ADALIMUMAB-AFZB
     Dosage: 1 DF, PREFILLED SYRINGE 80 MG AT WEEK 0 AND 40MG EVERY OTHER WEEK BEGINNING AT WEEK 1
     Route: 058
     Dates: start: 20231108
  5. ABRILADA [Concomitant]
     Active Substance: ADALIMUMAB-AFZB
     Dosage: 1 DF, PREFILLED SYRINGE 80 MG AT WEEK 0 AND 40MG EVERY OTHER WEEK BEGINNING AT WEEK 1
     Route: 058
     Dates: start: 20240125

REACTIONS (7)
  - Macular oedema [Unknown]
  - Malaise [Unknown]
  - Off label use [Unknown]
  - Dizziness [Unknown]
  - Brain fog [Unknown]
  - Fatigue [Unknown]
  - Condition aggravated [Unknown]
